FAERS Safety Report 14939557 (Version 1)
Quarter: 2018Q2

REPORT INFORMATION
  Report Type: Report from Study
  Country: IE (occurrence: IE)
  Receive Date: 20180525
  Receipt Date: 20180525
  Transmission Date: 20180711
  Serious: Yes (Death, Other)
  Sender: FDA-Public Use
  Company Number: IE-AMGEN-IRLSL2018070984

PATIENT
  Age: 93 Year
  Sex: Female

DRUGS (9)
  1. ONDANSETRON [Concomitant]
     Active Substance: ONDANSETRON
     Dosage: 4 MG, TID
  2. ONE ALPHA [Concomitant]
     Active Substance: ALFACALCIDOL
     Dosage: 25 MCG, QD
  3. ARANESP [Suspect]
     Active Substance: DARBEPOETIN ALFA
     Indication: PRODUCT USED FOR UNKNOWN INDICATION
     Dosage: 30 MCG, Q2WK
     Route: 058
     Dates: start: 20180406
  4. FUROSEMIDE. [Concomitant]
     Active Substance: FUROSEMIDE
     Dosage: 40 MG, QD
  5. PANTOFLUX [Concomitant]
     Dosage: 40 MG, QD
  6. ARANESP [Suspect]
     Active Substance: DARBEPOETIN ALFA
     Dosage: 30 MCG, Q2WK
     Route: 058
     Dates: start: 20180420
  7. ELTROXIN [Concomitant]
     Active Substance: LEVOTHYROXINE
     Dosage: 25 MCG, QD
  8. LECALPIN [Concomitant]
     Dosage: 20 MG, QD
  9. RANITIDINE. [Concomitant]
     Active Substance: RANITIDINE
     Dosage: 150 MG, QD

REACTIONS (1)
  - Death [Fatal]

NARRATIVE: CASE EVENT DATE: 20180521
